FAERS Safety Report 16924777 (Version 1)
Quarter: 2019Q4

REPORT INFORMATION
  Report Type: Spontaneous
  Country: US (occurrence: US)
  Receive Date: 20191015
  Receipt Date: 20191015
  Transmission Date: 20200122
  Serious: Yes (Other)
  Sender: FDA-Public Use
  Company Number: None

PATIENT
  Age: 59 Year
  Sex: Male

DRUGS (1)
  1. DEFINITY [Suspect]
     Active Substance: PERFLUTREN
     Indication: ECHOCARDIOGRAM
     Dosage: ?          OTHER FREQUENCY:ONE TIME;?
     Route: 040
     Dates: start: 20190905, end: 20190905

REACTIONS (2)
  - Blood pressure decreased [None]
  - Neck pain [None]

NARRATIVE: CASE EVENT DATE: 20190905
